FAERS Safety Report 6368498-X (Version None)
Quarter: 2009Q3

REPORT INFORMATION
  Report Type: 
  Country: None (occurrence: None)
  Receive Date: 20090922
  Receipt Date: 20090911
  Transmission Date: 20100115
  Serious: Yes (Death, Hospitalization)
  Sender: FDA-Public Use
  Company Number: B0561157A

PATIENT
  Sex: Female

DRUGS (4)
  1. TYVERB [Suspect]
     Dosage: 1250MG PER DAY
     Route: 048
     Dates: start: 20090113, end: 20090204
  2. STEROIDS [Concomitant]
  3. DEXAMETHASONE [Concomitant]
     Dosage: 2MG THREE TIMES PER DAY
     Route: 065
  4. FUROSEMIDE [Concomitant]
     Indication: DIURETIC THERAPY
     Route: 065

REACTIONS (5)
  - DEATH [None]
  - HYPERSENSITIVITY [None]
  - OEDEMA [None]
  - RASH ERYTHEMATOUS [None]
  - URTICARIA [None]
